FAERS Safety Report 24579899 (Version 1)
Quarter: 2024Q4

REPORT INFORMATION
  Report Type: Report from Study
  Country: US (occurrence: US)
  Receive Date: 20241105
  Receipt Date: 20241105
  Transmission Date: 20250114
  Serious: Yes (Other)
  Sender: ROCHE
  Company Number: US-ROCHE-10000124426

PATIENT
  Age: 66 Year
  Sex: Female

DRUGS (1)
  1. ACTEMRA [Suspect]
     Active Substance: TOCILIZUMAB
     Indication: Systemic scleroderma
     Dosage: INJECT 0.9ML (162MG TOTAL) SUBCUTANEOUSLY EVERY 7 DAY(S)
     Route: 058

REACTIONS (1)
  - Cataract [Unknown]
